FAERS Safety Report 7080134-6 (Version None)
Quarter: 2010Q4

REPORT INFORMATION
  Report Type: 
  Country: None (occurrence: None)
  Receive Date: 20101102
  Receipt Date: 20101028
  Transmission Date: 20110411
  Serious: Yes (Other)
  Sender: FDA-Public Use
  Company Number: ES-BRISTOL-MYERS SQUIBB COMPANY-15354947

PATIENT
  Age: 41 Year
  Sex: Female

DRUGS (4)
  1. REYATAZ [Suspect]
     Indication: HIV INFECTION
     Dates: start: 20100601
  2. RITONAVIR [Interacting]
     Indication: HIV INFECTION
     Route: 048
     Dates: start: 20100601
  3. ZIDOVUDINE [Interacting]
     Indication: HIV INFECTION
     Route: 048
     Dates: start: 20100601
  4. LAMIVUDINE [Interacting]
     Indication: HIV INFECTION
     Route: 048
     Dates: start: 20100601

REACTIONS (3)
  - ALOPECIA [None]
  - BLOOD BILIRUBIN INCREASED [None]
  - PIGMENTATION DISORDER [None]
